FAERS Safety Report 21411640 (Version 3)
Quarter: 2023Q2

REPORT INFORMATION
  Report Type: Spontaneous
  Country: JP (occurrence: JP)
  Receive Date: 20221005
  Receipt Date: 20230405
  Transmission Date: 20230722
  Serious: No
  Sender: FDA-Public Use
  Company Number: JP-CHEMOCENTRYX, INC.-2022JPCCXI0367

PATIENT

DRUGS (7)
  1. TAVNEOS [Suspect]
     Active Substance: AVACOPAN
     Indication: Granulomatosis with polyangiitis
     Dosage: 60 MG (30 MG, 2 IN 1 D)
     Route: 048
     Dates: start: 20220908, end: 20220909
  2. TAVNEOS [Suspect]
     Active Substance: AVACOPAN
     Dosage: 10 MG (10 MG, 1 IN 1 D)
     Route: 048
     Dates: start: 20220910, end: 20220916
  3. PREDONINE [Concomitant]
     Active Substance: PREDNISOLONE
     Indication: Granulomatosis with polyangiitis
     Dosage: 5 MG
     Route: 048
  4. VONOPRAZAN FUMARATE [Concomitant]
     Active Substance: VONOPRAZAN FUMARATE
     Indication: Prophylaxis against gastrointestinal ulcer
     Dosage: 20 MG
  5. SULFAMETHOXAZOLE\TRIMETHOPRIM [Concomitant]
     Active Substance: SULFAMETHOXAZOLE\TRIMETHOPRIM
     Indication: Antifungal prophylaxis
     Dosage: 1 DOSAGE FORMS (1 DOSAGE FORMS, 1 IN 1 D)
     Route: 048
  6. ELDECALCITOL [Concomitant]
     Active Substance: ELDECALCITOL
     Indication: Osteoporosis prophylaxis
     Dosage: 0.75 MCG
     Route: 048
  7. CRESTOR [Concomitant]
     Active Substance: ROSUVASTATIN CALCIUM
     Indication: Dyslipidaemia
     Dosage: 2.5 MG

REACTIONS (3)
  - Abdominal pain upper [Recovered/Resolved]
  - Vomiting [Recovered/Resolved]
  - Nausea [Recovered/Resolved]

NARRATIVE: CASE EVENT DATE: 20220908
